FAERS Safety Report 12038998 (Version 2)
Quarter: 2016Q2

REPORT INFORMATION
  Report Type: Spontaneous
  Country: DE (occurrence: DE)
  Receive Date: 20160208
  Receipt Date: 20160415
  Transmission Date: 20160815
  Serious: Yes (Life-Threatening, Hospitalization)
  Sender: FDA-Public Use
  Company Number: DE-JNJFOC-20151205207

PATIENT
  Age: 72 Year
  Sex: Male
  Weight: 110 kg

DRUGS (37)
  1. DUROGESIC SMAT [Suspect]
     Active Substance: FENTANYL
     Indication: DYSPNOEA
     Route: 062
     Dates: start: 20151002
  2. FRAGMIN [Concomitant]
     Active Substance: DALTEPARIN SODIUM
     Dosage: 75000IE FOR 1 DAY
     Route: 065
  3. LEFAX [Concomitant]
     Dosage: 38 DAYS
     Route: 048
  4. DUROGESIC SMAT [Suspect]
     Active Substance: FENTANYL
     Indication: RESPIRATORY FAILURE
     Route: 062
     Dates: start: 20151008
  5. LIQUEMINE [Concomitant]
     Active Substance: HEPARIN SODIUM
     Dosage: 25000IE/50ML FOR 1 DAY
     Route: 042
  6. DUROGESIC SMAT [Suspect]
     Active Substance: FENTANYL
     Indication: DYSPNOEA
     Route: 062
     Dates: start: 20151008
  7. SUFENTA [Suspect]
     Active Substance: SUFENTANIL CITRATE
     Indication: RESPIRATORY FAILURE
     Route: 042
     Dates: start: 20151013, end: 20151014
  8. SUFENTA [Suspect]
     Active Substance: SUFENTANIL CITRATE
     Indication: DYSPNOEA
     Route: 042
     Dates: start: 20151013, end: 20151014
  9. LANTUS [Concomitant]
     Active Substance: INSULIN GLARGINE
     Dosage: 10IE
     Route: 065
  10. CONCOR [Concomitant]
     Active Substance: BISOPROLOL FUMARATE
     Dosage: 40 DAYS
     Route: 048
  11. NOVALGIN [Concomitant]
     Active Substance: METAMIZOLE SODIUM
     Dosage: 30 DROPS
     Route: 048
  12. SULTANOL [Concomitant]
     Active Substance: ALBUTEROL SULFATE
     Dosage: 22 DAYS
     Route: 065
  13. MESALAZINE [Concomitant]
     Active Substance: MESALAMINE
     Indication: COLITIS ULCERATIVE
     Dosage: 20 DAYS
     Route: 065
  14. NORADRENALIN [Concomitant]
     Active Substance: NOREPINEPHRINE\NOREPINEPHRINE BITARTRATE
     Dosage: 25MG/50 ML FOR 1 DAY
     Route: 042
  15. HEPARIN SODIUM. [Concomitant]
     Active Substance: HEPARIN SODIUM
     Route: 058
  16. DOXAZOSIN [Concomitant]
     Active Substance: DOXAZOSIN\DOXAZOSIN MESYLATE
     Dosage: 40 DAYS
     Route: 065
  17. ZOCOR [Concomitant]
     Active Substance: SIMVASTATIN
     Dosage: 40 DAYS
     Route: 048
  18. XIMOVAN [Concomitant]
     Dosage: 26 DAYS
     Route: 065
  19. REOPRO [Suspect]
     Active Substance: ABCIXIMAB
     Indication: ACUTE MYOCARDIAL INFARCTION
     Route: 042
     Dates: start: 20151013, end: 20151013
  20. DUROGESIC SMAT [Suspect]
     Active Substance: FENTANYL
     Indication: DYSPNOEA
     Route: 062
     Dates: start: 20150911
  21. LASIX [Concomitant]
     Active Substance: FUROSEMIDE
     Route: 042
  22. DIHYDRALAZIN [Concomitant]
     Dosage: 40 DAYS
     Route: 048
  23. ATROVENT [Concomitant]
     Active Substance: IPRATROPIUM BROMIDE
     Dosage: 22 DAYS
     Route: 065
  24. CALCIUM CITRATE [Concomitant]
     Active Substance: CALCIUM CITRATE
     Indication: HAEMODIALYSIS
     Route: 065
     Dates: start: 20150813, end: 20150818
  25. DUROGESIC SMAT [Suspect]
     Active Substance: FENTANYL
     Indication: RESPIRATORY FAILURE
     Route: 062
     Dates: start: 20150911
  26. ACTRAPID [Concomitant]
     Active Substance: INSULIN HUMAN
     Dosage: 12IE
     Route: 058
  27. NORVASC [Concomitant]
     Active Substance: AMLODIPINE BESYLATE
     Dosage: 40 DAYS
     Route: 048
  28. PANTOZOL [Concomitant]
     Active Substance: PANTOPRAZOLE SODIUM
     Dosage: 20 DAYS
     Route: 048
  29. DUROGESIC SMAT [Suspect]
     Active Substance: FENTANYL
     Indication: RESPIRATORY FAILURE
     Route: 062
     Dates: start: 20151002
  30. LASIX [Concomitant]
     Active Substance: FUROSEMIDE
     Route: 042
  31. PLAVIX [Concomitant]
     Active Substance: CLOPIDOGREL BISULFATE
     Dosage: FOR 40 DAYS
     Route: 048
  32. ASPIRIN. [Concomitant]
     Active Substance: ASPIRIN
     Dosage: 40 DAYS
     Route: 048
  33. DELIX PROTECT [Concomitant]
     Dosage: 40 DAYS
     Route: 048
  34. METHIONINE [Concomitant]
     Active Substance: METHIONINE
     Dosage: 21 DAYS
     Route: 048
  35. TACHOLIQUIN [Concomitant]
     Dosage: 22 DAYS
     Route: 065
  36. MOVICOL [Concomitant]
     Active Substance: POLYETHYLENE GLYCOL 3350\POTASSIUM CHLORIDE\SODIUM BICARBONATE\SODIUM CHLORIDE
     Dosage: 40 DAYS
     Route: 048
  37. SODIUM CHLORIDE. [Concomitant]
     Active Substance: SODIUM CHLORIDE
     Dosage: 20 DAYS
     Route: 065

REACTIONS (3)
  - Off label use [Unknown]
  - Thrombocytopenia [Recovered/Resolved]
  - Product use issue [Unknown]

NARRATIVE: CASE EVENT DATE: 20151021
